FAERS Safety Report 8163883-8 (Version None)
Quarter: 2012Q1

REPORT INFORMATION
  Report Type: 
  Country: None (occurrence: None)
  Receive Date: 20120224
  Receipt Date: 20120223
  Transmission Date: 20120608
  Serious: Yes (Hospitalization)
  Sender: FDA-Public Use
  Company Number: FR-JNJFOC-20111209116

PATIENT
  Age: 51 Year
  Sex: Male

DRUGS (4)
  1. REMICADE [Suspect]
     Indication: PSORIATIC ARTHROPATHY
     Route: 042
     Dates: start: 20111012, end: 20111125
  2. INDOMETHACIN [Concomitant]
     Indication: PRODUCT USED FOR UNKNOWN INDICATION
  3. REMICADE [Suspect]
     Route: 042
     Dates: start: 20030101, end: 20110101
  4. ARAVA [Concomitant]
     Indication: PRODUCT USED FOR UNKNOWN INDICATION

REACTIONS (7)
  - ERYTHEMA [None]
  - INFUSION RELATED REACTION [None]
  - RENAL NEOPLASM [None]
  - TACHYCARDIA [None]
  - THERAPEUTIC RESPONSE DECREASED [None]
  - HYPERHIDROSIS [None]
  - MALAISE [None]
